FAERS Safety Report 24319217 (Version 2)
Quarter: 2024Q4

REPORT INFORMATION
  Report Type: Spontaneous
  Country: CN (occurrence: CN)
  Receive Date: 20240913
  Receipt Date: 20241007
  Transmission Date: 20250114
  Serious: Yes (Other)
  Sender: BEIGENE
  Company Number: CN-BEIGENE-BGN-2024-014325

PATIENT

DRUGS (3)
  1. BRUKINSA [Suspect]
     Active Substance: ZANUBRUTINIB
     Indication: Lymphoma
     Dosage: UNK
     Dates: start: 202208
  2. GAZYVA [Concomitant]
     Active Substance: OBINUTUZUMAB
     Indication: Lymphoma
     Dosage: UNK
     Dates: end: 202301
  3. BENDAMUSTINE [Concomitant]
     Active Substance: BENDAMUSTINE
     Indication: Lymphoma
     Dosage: UNK
     Dates: end: 202301

REACTIONS (9)
  - COVID-19 pneumonia [Unknown]
  - Squamous cell carcinoma of skin [Unknown]
  - Platelet count decreased [Recovered/Resolved]
  - Palpitations [Recovered/Resolved]
  - Rhinitis [Recovering/Resolving]
  - Otitis media [Recovering/Resolving]
  - Urinary tract infection [Recovering/Resolving]
  - White blood cell count decreased [Recovered/Resolved]
  - Product odour abnormal [Unknown]

NARRATIVE: CASE EVENT DATE: 20230101
